FAERS Safety Report 7015024-8 (Version None)
Quarter: 2010Q3

REPORT INFORMATION
  Report Type: 
  Country: None (occurrence: None)
  Receive Date: 20100927
  Receipt Date: 20100104
  Transmission Date: 20110219
  Serious: No
  Sender: FDA-Public Use
  Company Number: US-ASTRAZENECA-2006UW19073

PATIENT
  Age: 55 Year
  Sex: Female
  Weight: 89.8 kg

DRUGS (9)
  1. ARIMIDEX [Suspect]
     Indication: BREAST CANCER
     Route: 048
     Dates: start: 20071001
  2. SEROQUEL [Concomitant]
     Indication: ANXIETY
     Route: 048
  3. EFFEXOR [Concomitant]
  4. ZYPREXA [Concomitant]
  5. ZOLOFT [Concomitant]
  6. XANAX [Concomitant]
  7. KLONOPIN [Concomitant]
  8. LEXAPRO [Concomitant]
  9. PAXIL [Concomitant]

REACTIONS (13)
  - ABNORMAL DREAMS [None]
  - AMNESIA [None]
  - ANXIETY [None]
  - ARTHRALGIA [None]
  - DEPRESSION [None]
  - FATIGUE [None]
  - HOT FLUSH [None]
  - INSOMNIA [None]
  - MOOD ALTERED [None]
  - MOOD SWINGS [None]
  - NAUSEA [None]
  - PANIC ATTACK [None]
  - WEIGHT INCREASED [None]
